FAERS Safety Report 7749725 (Version 2)
Quarter: 2012Q4

REPORT INFORMATION
  Report Type: 
  Country: BR (occurrence: BR)
  Receive Date: 20110106
  Receipt Date: 20121031
  Transmission Date: 20130627
  Serious: Yes (Other)
  Sender: FDA-Public Use
  Company Number: BR-AMGEN-BRASP2010012500

PATIENT
  Age: 46 Year
  Sex: Male

DRUGS (2)
  1. ENBREL [Suspect]
     Indication: PSORIATIC ARTHROPATHY
     Dosage: 50 mg, weekly
     Route: 058
     Dates: start: 2009
  2. SIMVASTATIN [Concomitant]
     Dosage: UNK
     Dates: start: 2007

REACTIONS (3)
  - Blood uric acid increased [Unknown]
  - Head discomfort [Not Recovered/Not Resolved]
  - Arthropathy [Not Recovered/Not Resolved]
